FAERS Safety Report 11869646 (Version 1)
Quarter: 2015Q4

REPORT INFORMATION
  Report Type: Spontaneous
  Country: US (occurrence: US)
  Receive Date: 20151228
  Receipt Date: 20151228
  Transmission Date: 20160305
  Serious: Yes (Other)
  Sender: FDA-Public Use
  Company Number: US-CIPLA LTD.-2015US09710

PATIENT

DRUGS (3)
  1. FLUOXETINE [Suspect]
     Active Substance: FLUOXETINE HYDROCHLORIDE
     Route: 064
  2. RISPERIDONE. [Suspect]
     Active Substance: RISPERIDONE
     Route: 064
  3. BENZOTROPINE [Suspect]
     Active Substance: BENZTROPINE
     Route: 064

REACTIONS (3)
  - Seizure [Unknown]
  - Developmental delay [Unknown]
  - Foetal exposure during pregnancy [Unknown]
